FAERS Safety Report 19378859 (Version 6)
Quarter: 2023Q2

REPORT INFORMATION
  Report Type: Report from Study
  Country: JP (occurrence: JP)
  Receive Date: 20210606
  Receipt Date: 20230615
  Transmission Date: 20230721
  Serious: Yes (Other)
  Sender: FDA-Public Use
  Company Number: JP-CELLTRION INC.-2020JP024558

PATIENT

DRUGS (10)
  1. INFLIXIMAB-DYYB [Suspect]
     Active Substance: INFLIXIMAB-DYYB
     Indication: Crohn^s disease
     Dosage: 460 MG (WEIGHT: 91.5KG)
     Route: 041
     Dates: start: 20181009, end: 20181009
  2. INFLIXIMAB-DYYB [Suspect]
     Active Substance: INFLIXIMAB-DYYB
     Dosage: 465 MILLIGRAM (WEIGHT: 92.4 KG)
     Route: 041
     Dates: start: 20181208, end: 20181208
  3. INFLIXIMAB-DYYB [Suspect]
     Active Substance: INFLIXIMAB-DYYB
     Dosage: 465 MILLIGRAM (WEIGHT: 93 KG)
     Route: 041
     Dates: start: 20190202, end: 20190202
  4. INFLIXIMAB-DYYB [Suspect]
     Active Substance: INFLIXIMAB-DYYB
     Dosage: 455 MILLIGRAM (WEIGHT: 91 KG)
     Route: 041
     Dates: start: 20190323, end: 20190323
  5. INFLIXIMAB-DYYB [Suspect]
     Active Substance: INFLIXIMAB-DYYB
     Dosage: 465 MG (WEIGHT: 93 KG)
     Route: 041
     Dates: start: 20191110, end: 20191110
  6. INFLIXIMAB-DYYB [Suspect]
     Active Substance: INFLIXIMAB-DYYB
     Dosage: 485 MILLIGRAM (WEIGH: 97 KG)
     Route: 041
     Dates: start: 20201004, end: 20201004
  7. INFLIXIMAB-DYYB [Suspect]
     Active Substance: INFLIXIMAB-DYYB
     Dosage: 500 MILLIGRAM (WEIGH: 100.5 KG)
     Route: 041
     Dates: start: 20211030, end: 20211030
  8. INFLIXIMAB-DYYB [Suspect]
     Active Substance: INFLIXIMAB-DYYB
     Dosage: 480 MILLIGRAM (WEIGH: 95.8 KG)
     Route: 041
     Dates: start: 20221009, end: 20221009
  9. MERCAPTOPURINE [Concomitant]
     Active Substance: MERCAPTOPURINE
     Dosage: 40 MG, DAILY
     Route: 048
  10. MESALAMINE [Concomitant]
     Active Substance: MESALAMINE
     Dosage: 2000 MG, DAILY
     Route: 048

REACTIONS (16)
  - Pharyngotonsillitis [Recovered/Resolved]
  - Pneumonia [Recovered/Resolved]
  - Cellulitis [Unknown]
  - COVID-19 [Recovered/Resolved]
  - Acne [Unknown]
  - Erythema nodosum [Not Recovered/Not Resolved]
  - Cough variant asthma [Recovered/Resolved]
  - Contusion [Unknown]
  - Nasopharyngitis [Recovered/Resolved]
  - Nasopharyngitis [Recovered/Resolved]
  - Nasopharyngitis [Recovered/Resolved]
  - Nasopharyngitis [Recovered/Resolved]
  - Pyrexia [Recovered/Resolved]
  - Overdose [Unknown]
  - Intentional product use issue [Unknown]
  - Intentional dose omission [Unknown]

NARRATIVE: CASE EVENT DATE: 20190212
